FAERS Safety Report 9336618 (Version 3)
Quarter: 2013Q3

REPORT INFORMATION
  Report Type: Spontaneous
  Country: US (occurrence: US)
  Receive Date: 20130607
  Receipt Date: 20130701
  Transmission Date: 20140515
  Serious: No
  Sender: FDA-Public Use
  Company Number: US-PFIZER INC-2013170941

PATIENT
  Age: 40 Year
  Sex: Male
  Weight: 86.17 kg

DRUGS (1)
  1. EPIPEN JR [Suspect]
     Dosage: 1:2000, 0.3 ML, 1 TIME (1 INJECTION)
     Dates: start: 20130603, end: 20130603

REACTIONS (4)
  - Accidental exposure to product [Recovered/Resolved]
  - Injection site pallor [Recovered/Resolved]
  - Injection site bruising [Recovered/Resolved]
  - Limb discomfort [Recovered/Resolved]
